FAERS Safety Report 20077939 (Version 2)
Quarter: 2021Q4

REPORT INFORMATION
  Report Type: Spontaneous
  Country: NG (occurrence: NG)
  Receive Date: 20211116
  Receipt Date: 20211120
  Transmission Date: 20220303
  Serious: Yes (Hospitalization, Other)
  Sender: FDA-Public Use
  Company Number: NG-MLMSERVICE-20211101-3197749-1

PATIENT
  Age: 19 Year
  Sex: Male

DRUGS (13)
  1. METHOTREXATE [Suspect]
     Active Substance: METHOTREXATE
     Indication: Prophylaxis
     Dosage: 12 MG; IT DAY 8, 15, 22, 29
     Route: 037
     Dates: start: 2020
  2. ASPARAGINASE [Suspect]
     Active Substance: ASPARAGINASE
     Indication: Philadelphia positive acute lymphocytic leukaemia
     Dosage: L-ASPARAGINASE 6000 U/M2 SC DAY 8, 10, 12, 14, 16, 18, 20, 22, 24, 26
     Route: 058
     Dates: start: 2020
  3. CYTARABINE [Suspect]
     Active Substance: CYTARABINE
     Indication: Prophylaxis
     Dosage: 30 MG; IT DAY 8, 15, 22, 29
     Route: 037
     Dates: start: 2020
  4. DAUNORUBICIN [Suspect]
     Active Substance: DAUNORUBICIN
     Indication: Philadelphia positive acute lymphocytic leukaemia
     Dosage: 20 MG/M2 IV DAY 8, 15, 29
     Route: 042
     Dates: start: 2020
  5. HYDROCORTISONE [Suspect]
     Active Substance: HYDROCORTISONE
     Indication: Prophylaxis
     Dosage: 20 MG; IT DAY 8, 15, 22, 29
     Route: 037
     Dates: start: 2020
  6. IMATINIB MESYLATE [Suspect]
     Active Substance: IMATINIB MESYLATE
     Indication: Philadelphia positive acute lymphocytic leukaemia
     Dates: start: 2020
  7. PREDNISOLONE [Suspect]
     Active Substance: PREDNISOLONE
     Indication: Philadelphia positive acute lymphocytic leukaemia
     Dosage: PRE-INDUCTION PREDNISOLONE-60 MG/M2 PO DAY 1-7
     Route: 048
     Dates: start: 2020
  8. VINCRISTINE [Suspect]
     Active Substance: VINCRISTINE
     Indication: Philadelphia positive acute lymphocytic leukaemia
     Dosage: 1.4 MG/M2 IV DAY 8, 15, 22, 29
     Route: 042
     Dates: start: 2020
  9. PROGUANIL [Concomitant]
     Active Substance: PROGUANIL
  10. FOLIC ACID [Concomitant]
     Active Substance: FOLIC ACID
  11. VITAMIN B-COMPLEX [Concomitant]
     Active Substance: DEXPANTHENOL\NIACINAMIDE\PYRIDOXINE HYDROCHLORIDE\RIBOFLAVIN 5^-PHOSPHATE SODIUM\THIAMINE HYDROCHLOR
  12. VITAMIN C [Concomitant]
     Active Substance: ASCORBIC ACID
  13. ARTESUNATE [Concomitant]
     Active Substance: ARTESUNATE
     Indication: Plasmodium falciparum infection
     Dates: start: 202005

REACTIONS (3)
  - Febrile neutropenia [Unknown]
  - Tinea versicolour [Unknown]
  - Sepsis [Unknown]

NARRATIVE: CASE EVENT DATE: 20200101
